FAERS Safety Report 20581982 (Version 1)
Quarter: 2022Q1

REPORT INFORMATION
  Report Type: Spontaneous
  Country: US (occurrence: None)
  Receive Date: 20220310
  Receipt Date: 20220310
  Transmission Date: 20220423
  Serious: Yes (Life-Threatening)
  Sender: FDA-Public Use
  Company Number: None

PATIENT
  Age: 33 Year
  Sex: Male
  Weight: 89.36 kg

DRUGS (1)
  1. LISDEXAMFETAMINE DIMESYLATE [Suspect]
     Active Substance: LISDEXAMFETAMINE DIMESYLATE
     Indication: Attention deficit hyperactivity disorder
     Dosage: 50 MG AM  PO?
     Route: 048
     Dates: start: 20191104, end: 20200413

REACTIONS (4)
  - Aggression [None]
  - Suicidal ideation [None]
  - Dysphoria [None]
  - Impulsive behaviour [None]

NARRATIVE: CASE EVENT DATE: 20200410
